FAERS Safety Report 5509466-7 (Version None)
Quarter: 2007Q4

REPORT INFORMATION
  Report Type: 
  Country: None (occurrence: None)
  Receive Date: 20071107
  Receipt Date: 20071026
  Transmission Date: 20080405
  Serious: Yes (Hospitalization, Other)
  Sender: FDA-Public Use
  Company Number: US-PFIZER INC-2007084203

PATIENT
  Sex: Male
  Weight: 88.5 kg

DRUGS (5)
  1. GEODON [Suspect]
     Indication: SCHIZOAFFECTIVE DISORDER
  2. GEODON [Suspect]
     Indication: PSYCHOTIC BEHAVIOUR
  3. BENADRYL [Suspect]
     Indication: MUSCLE SPASMS
  4. SEROQUEL [Suspect]
     Route: 048
  5. DEPAKOTE [Concomitant]

REACTIONS (6)
  - DRUG INEFFECTIVE [None]
  - DYSTONIA [None]
  - MUSCLE SPASMS [None]
  - RASH [None]
  - RHABDOMYOLYSIS [None]
  - TARDIVE DYSKINESIA [None]
